FAERS Safety Report 22013547 (Version 1)
Quarter: 2023Q1

REPORT INFORMATION
  Report Type: Spontaneous
  Country: US (occurrence: US)
  Receive Date: 20230220
  Receipt Date: 20230220
  Transmission Date: 20230418
  Serious: Yes (Other)
  Sender: FDA-Public Use
  Company Number: None

PATIENT
  Age: 59 Year
  Sex: Female

DRUGS (26)
  1. DILTIAZEM [Interacting]
     Active Substance: DILTIAZEM
     Indication: Cardiomyopathy
     Dosage: 120 MILLIGRAM, AT BED TIME; PER DAY; RECEIVED AT NIGHT
     Route: 065
  2. FLUOXETINE [Interacting]
     Active Substance: FLUOXETINE HYDROCHLORIDE
     Indication: Major depression
     Dosage: 40 MILLIGRAM; PER DAY
     Route: 065
  3. FLUOXETINE [Interacting]
     Active Substance: FLUOXETINE HYDROCHLORIDE
     Indication: Generalised anxiety disorder
  4. HYDROCODONE BITARTRATE AND ACETAMINOPHEN [Suspect]
     Active Substance: ACETAMINOPHEN\HYDROCODONE BITARTRATE
     Indication: Pain
     Dosage: 5 MILLIGRAM, PRN; HYDROCODONE 5 MG PRN
     Route: 065
     Dates: end: 2019
  5. HYDROCODONE BITARTRATE AND ACETAMINOPHEN [Suspect]
     Active Substance: ACETAMINOPHEN\HYDROCODONE BITARTRATE
     Dosage: UNK, QID; 10 MG-325 MG FOUR TIMES DAILY
     Route: 065
     Dates: start: 2019, end: 202109
  6. FUROSEMIDE [Suspect]
     Active Substance: FUROSEMIDE
     Indication: Cardiomyopathy
     Dosage: 40 MILLIGRAM; PER DAY
     Route: 065
  7. BUPROPION [Interacting]
     Active Substance: BUPROPION
     Indication: Major depression
     Dosage: 300 MILLIGRAM; PER DAY
     Route: 065
     Dates: end: 202109
  8. BUPROPION [Interacting]
     Active Substance: BUPROPION
     Indication: Generalised anxiety disorder
     Dosage: 300 MILLIGRAM; PER DAY
     Route: 065
     Dates: end: 202210
  9. BUPROPION [Interacting]
     Active Substance: BUPROPION
     Dosage: 150 MILLIGRAM; DAILY
     Route: 065
     Dates: start: 202210
  10. DOXEPIN [Interacting]
     Active Substance: DOXEPIN
     Indication: Major depression
     Dosage: 75 MILLIGRAM, PER DAY; AT BED TIME; RECEIVED AT NIGHT
     Route: 065
  11. DOXEPIN [Interacting]
     Active Substance: DOXEPIN
     Indication: Generalised anxiety disorder
     Dosage: UNK; REDUCED
     Route: 065
     Dates: start: 2020, end: 202011
  12. BACLOFEN [Concomitant]
     Active Substance: BACLOFEN
     Indication: Muscle spasms
     Dosage: 10 MILLIGRAM, PRN; 6 HOURS; AS NEEDED
     Route: 065
  13. ALBUTEROL\IPRATROPIUM [Concomitant]
     Active Substance: ALBUTEROL\IPRATROPIUM
     Indication: Asthma
     Dosage: UNK, PRN; 2.5-0.5 MG/3ML, AS NEEDED
     Route: 065
  14. MONTELUKAST [Concomitant]
     Active Substance: MONTELUKAST SODIUM
     Indication: Asthma
     Dosage: 10 MILLIGRAM, AT BED TIME; PER DAY; RECEIVED AT NIGHT
     Route: 065
  15. ATORVASTATIN [Concomitant]
     Active Substance: ATORVASTATIN
     Indication: Hyperlipidaemia
     Dosage: 80 MILLIGRAM, AT BED TIME; PER DAY; RECEIVED AT NIGHT; NIGHTLY
     Route: 065
  16. ASPIRIN [Concomitant]
     Active Substance: ASPIRIN
     Indication: Cardiomyopathy
     Dosage: 81 MILLIGRAM; PER DAY
     Route: 065
  17. LOSARTAN [Concomitant]
     Active Substance: LOSARTAN
     Indication: Cardiomyopathy
     Dosage: 25 MILLIGRAM; PER DAY
     Route: 065
  18. METFORMIN [Concomitant]
     Active Substance: METFORMIN HYDROCHLORIDE
     Indication: Diabetes mellitus
     Dosage: 1000 MILLIGRAM, BID
     Route: 065
  19. SITAGLIPTIN [Concomitant]
     Active Substance: SITAGLIPTIN
     Indication: Diabetes mellitus
     Dosage: 100 MILLIGRAM; PER DAY
     Route: 065
  20. GLIPIZIDE [Concomitant]
     Active Substance: GLIPIZIDE
     Indication: Diabetes mellitus
     Dosage: 5 MILLIGRAM; PER DAY
     Route: 065
  21. GABAPENTIN [Concomitant]
     Active Substance: GABAPENTIN
     Indication: Neuropathy peripheral
     Dosage: 800 MILLIGRAM, QID; RECEIVED FOUR TIMES A DAY
     Route: 065
  22. LEVOTHYROXINE [Concomitant]
     Active Substance: LEVOTHYROXINE
     Indication: Hypothyroidism
     Dosage: 50 NANOGRAM; PER DAY
     Route: 065
  23. LEVOTHYROXINE [Concomitant]
     Active Substance: LEVOTHYROXINE
     Dosage: 50 MICROGRAM; PER DAY
     Route: 065
  24. PRAMIPEXOLE [Concomitant]
     Active Substance: PRAMIPEXOLE
     Indication: Restless legs syndrome
     Dosage: 1 MILLIGRAM, TID; THREE TIMES A DAY; PER 8 HOURS
     Route: 065
  25. CALCIUM CARBONATE [Concomitant]
     Active Substance: CALCIUM CARBONATE
     Indication: Hypovitaminosis
     Dosage: 1250 MILLIGRAM; PER DAY
     Route: 065
  26. FERROUS SULFATE [Concomitant]
     Active Substance: FERROUS SULFATE
     Indication: Hypovitaminosis
     Dosage: 325 MILLIGRAM; PER DAY
     Route: 065

REACTIONS (8)
  - Fall [Recovered/Resolved]
  - Joint injury [Recovered/Resolved]
  - Sedation complication [Recovered/Resolved]
  - Drug-genetic interaction [Unknown]
  - Drug interaction [Unknown]
  - Treatment failure [Unknown]
  - Inadequate analgesia [Unknown]
  - Off label use [Unknown]

NARRATIVE: CASE EVENT DATE: 20200101
